FAERS Safety Report 16938235 (Version 1)
Quarter: 2020Q3

REPORT INFORMATION
  Report Type: Spontaneous
  Country: CA (occurrence: CA)
  Receive Date: 20191018
  Receipt Date: 20191018
  Transmission Date: 20201104
  Serious: Yes (Congenital Anomaly, Other)
  Sender: FDA-Public Use
  Company Number: CA-TEVA-2019-CA-1123621

PATIENT
  Age: 6 Month
  Sex: Female

DRUGS (17)
  1. DOMPERIDONE [Suspect]
     Active Substance: DOMPERIDONE
     Indication: LACTATION DISORDER
     Route: 048
  2. LEVOTHYROXINE. [Suspect]
     Active Substance: LEVOTHYROXINE
     Indication: PRODUCT USED FOR UNKNOWN INDICATION
     Route: 048
  3. INSULIN [Suspect]
     Active Substance: INSULIN NOS
     Indication: PRODUCT USED FOR UNKNOWN INDICATION
     Route: 064
  4. FERROUS SULFATE. [Suspect]
     Active Substance: FERROUS SULFATE
     Indication: PRODUCT USED FOR UNKNOWN INDICATION
     Route: 048
  5. DOCUSATE SODIUM. [Suspect]
     Active Substance: DOCUSATE SODIUM
     Route: 064
  6. URSODEOXYCHOLIC ACID [Suspect]
     Active Substance: URSODIOL
     Indication: PRODUCT USED FOR UNKNOWN INDICATION
     Route: 064
  7. METHYLPHENIDATE. [Suspect]
     Active Substance: METHYLPHENIDATE
     Route: 064
  8. OMEPRAZOLE. [Suspect]
     Active Substance: OMEPRAZOLE
     Route: 064
  9. LEVOTHYROXINE. [Suspect]
     Active Substance: LEVOTHYROXINE
     Route: 064
  10. CYCLOBENZAPRINE. [Suspect]
     Active Substance: CYCLOBENZAPRINE
     Indication: PRODUCT USED FOR UNKNOWN INDICATION
     Route: 048
  11. DULOXETINE. [Suspect]
     Active Substance: DULOXETINE
     Indication: PRODUCT USED FOR UNKNOWN INDICATION
     Route: 048
  12. METHYLPHENIDATE. [Suspect]
     Active Substance: METHYLPHENIDATE
     Indication: PRODUCT USED FOR UNKNOWN INDICATION
     Route: 048
  13. DOCUSATE SODIUM. [Suspect]
     Active Substance: DOCUSATE SODIUM
     Indication: PRODUCT USED FOR UNKNOWN INDICATION
     Route: 048
  14. DULOXETINE. [Suspect]
     Active Substance: DULOXETINE
     Route: 064
  15. FERROUS SULFATE. [Suspect]
     Active Substance: FERROUS SULFATE
     Route: 064
  16. CYCLOBENZAPRINE. [Suspect]
     Active Substance: CYCLOBENZAPRINE
     Route: 064
  17. OMEPRAZOLE. [Suspect]
     Active Substance: OMEPRAZOLE
     Indication: PRODUCT USED FOR UNKNOWN INDICATION
     Route: 048

REACTIONS (6)
  - Pneumonia [Unknown]
  - Pulmonary malformation [Unknown]
  - Maternal exposure during breast feeding [Unknown]
  - Foetal exposure during pregnancy [Unknown]
  - Somnolence [Unknown]
  - Lung cyst [Unknown]
